FAERS Safety Report 8357916-3 (Version None)
Quarter: 2012Q2

REPORT INFORMATION
  Report Type: 
  Country: None (occurrence: None)
  Receive Date: 20120514
  Receipt Date: 20120508
  Transmission Date: 20120825
  Serious: Yes (Hospitalization)
  Sender: FDA-Public Use
  Company Number: US-CELGENEUS-163-20785-12050909

PATIENT
  Sex: Female
  Weight: 65.83 kg

DRUGS (6)
  1. PREDNISONE [Concomitant]
     Route: 065
  2. LYRICA [Concomitant]
     Route: 065
     Dates: end: 20120401
  3. FENTANYL-100 [Concomitant]
     Dosage: 100 MICROGRAM
     Route: 065
  4. THALOMID [Suspect]
     Indication: MULTIPLE MYELOMA
     Dosage: 50 MILLIGRAM
     Route: 048
     Dates: start: 20110524
  5. NORVASC [Concomitant]
     Indication: HYPERTENSION
     Route: 065
  6. NEURONTIN [Concomitant]
     Route: 065

REACTIONS (2)
  - ABASIA [None]
  - CONFUSIONAL STATE [None]
